FAERS Safety Report 22143495 (Version 2)
Quarter: 2023Q2

REPORT INFORMATION
  Report Type: Report from Study
  Country: HU (occurrence: HU)
  Receive Date: 20230327
  Receipt Date: 20230421
  Transmission Date: 20230721
  Serious: Yes (Disabling, Other)
  Sender: FDA-Public Use
  Company Number: HU-002147023-NVSC2023HU040197

PATIENT
  Sex: Female

DRUGS (5)
  1. ZOLEDRONIC ACID [Suspect]
     Active Substance: ZOLEDRONIC ACID
     Indication: Metastases to bone
     Dosage: 4 MG, Q4W (EVERY 4 WEEKS) (4 MG IN 100 ML)
     Route: 065
     Dates: start: 20210209
  2. KISQALI [Suspect]
     Active Substance: RIBOCICLIB
     Indication: Breast cancer
     Dosage: 400 MG (DAILY IN 21 DAY CYCLES)
     Route: 048
     Dates: start: 20210805, end: 20230209
  3. KISQALI [Suspect]
     Active Substance: RIBOCICLIB
     Indication: Metastases to bone
  4. Famos [Concomitant]
     Indication: Product used for unknown indication
     Dosage: 2.5 MG, QD (DAILY, CONTINUOUSLY)
     Route: 048
     Dates: start: 20210805, end: 20230209
  5. ALBUTEROL SULFATE [Concomitant]
     Active Substance: ALBUTEROL SULFATE
     Indication: Product used for unknown indication
     Dosage: 100 ML, Q4W (EVERY 4 WEEKS)
     Route: 065
     Dates: start: 20210209

REACTIONS (5)
  - Metastases to liver [Unknown]
  - Metastases to bone [Unknown]
  - Malignant neoplasm progression [Unknown]
  - Liver function test increased [Not Recovered/Not Resolved]
  - Drug resistance [Not Recovered/Not Resolved]

NARRATIVE: CASE EVENT DATE: 20230118
